FAERS Safety Report 18172004 (Version 2)
Quarter: 2025Q3

REPORT INFORMATION
  Report Type: Report from Study
  Country: EU (occurrence: EU)
  Receive Date: 20200820
  Receipt Date: 20250805
  Transmission Date: 20251020
  Serious: Yes (Other)
  Sender: AUROBINDO
  Company Number: EU-TEVA-2020-FR-1812739

PATIENT
  Age: 58 Year
  Sex: Female

DRUGS (3)
  1. OLANZAPINE [Interacting]
     Active Substance: OLANZAPINE
     Indication: Hallucination
     Route: 065
  2. OLANZAPINE [Interacting]
     Active Substance: OLANZAPINE
     Indication: Psychotic disorder
  3. CABERGOLINE [Interacting]
     Active Substance: CABERGOLINE
     Indication: Prolactin-producing pituitary tumour
     Dosage: 0.5 MILLIGRAM, EVERY WEEK
     Route: 065

REACTIONS (2)
  - Drug interaction [Unknown]
  - Therapeutic product effect decreased [Unknown]
